FAERS Safety Report 22256598 (Version 7)
Quarter: 2023Q4

REPORT INFORMATION
  Report Type: Spontaneous
  Country: US (occurrence: US)
  Receive Date: 20230426
  Receipt Date: 20231113
  Transmission Date: 20240110
  Serious: No
  Sender: FDA-Public Use
  Company Number: US-LUNDBECK-DKLU3059997

PATIENT
  Age: 62 Year
  Sex: Female
  Weight: 79.8 kg

DRUGS (4)
  1. VYEPTI [Suspect]
     Active Substance: EPTINEZUMAB-JJMR
     Indication: Migraine
     Route: 041
     Dates: start: 20230323
  2. VYEPTI [Suspect]
     Active Substance: EPTINEZUMAB-JJMR
     Indication: Migraine without aura
  3. ROBITUSSIN (GUAIFENESIN) [Concomitant]
     Active Substance: GUAIFENESIN
     Indication: Pulmonary congestion
     Route: 065
  4. BOTOX [Concomitant]
     Active Substance: ONABOTULINUMTOXINA
     Indication: Product used for unknown indication
     Route: 065

REACTIONS (5)
  - Headache [Recovered/Resolved]
  - Hypersomnia [Unknown]
  - Lower respiratory tract congestion [Recovered/Resolved]
  - Therapeutic response changed [Unknown]
  - Drug ineffective [Unknown]

NARRATIVE: CASE EVENT DATE: 20230323
